FAERS Safety Report 12382018 (Version 1)
Quarter: 2016Q2

REPORT INFORMATION
  Report Type: Other
  Country: US (occurrence: US)
  Receive Date: 20160518
  Receipt Date: 20160518
  Transmission Date: 20160815
  Serious: No
  Sender: FDA-Public Use
  Company Number: US-EXELTIS USA INC.-1052413

PATIENT
  Sex: Male

DRUGS (1)
  1. ECOZA [Suspect]
     Active Substance: ECONAZOLE NITRATE
     Indication: TINEA PEDIS
     Route: 061
     Dates: start: 201601, end: 201602

REACTIONS (1)
  - Burning sensation [Unknown]

NARRATIVE: CASE EVENT DATE: 20160201
